FAERS Safety Report 24391384 (Version 2)
Quarter: 2025Q2

REPORT INFORMATION
  Report Type: Report from Study
  Country: US (occurrence: US)
  Receive Date: 20241003
  Receipt Date: 20250421
  Transmission Date: 20250716
  Serious: Yes (Hospitalization, Other)
  Sender: TAKEDA
  Company Number: US-TAKEDA-US202008002

PATIENT
  Age: 50 Year
  Sex: Female
  Weight: 43 kg

DRUGS (39)
  1. TEDUGLUTIDE [Suspect]
     Active Substance: TEDUGLUTIDE
     Indication: Short-bowel syndrome
     Dosage: 0.213 MILLIGRAM, QD
  2. TEDUGLUTIDE [Suspect]
     Active Substance: TEDUGLUTIDE
     Indication: Malabsorption
     Dosage: 0.21 MILLIGRAM, QD
  3. TEDUGLUTIDE [Suspect]
     Active Substance: TEDUGLUTIDE
     Dosage: 0.21 MILLIGRAM, QD
  4. TEDUGLUTIDE [Suspect]
     Active Substance: TEDUGLUTIDE
     Dosage: 0.25 MILLIGRAM, QD
  5. TEDUGLUTIDE [Suspect]
     Active Substance: TEDUGLUTIDE
     Dosage: 0.25 MILLILITER, QD
  6. TEDUGLUTIDE [Suspect]
     Active Substance: TEDUGLUTIDE
     Dosage: 0.25 MILLILITER, QD
  7. TEDUGLUTIDE [Suspect]
     Active Substance: TEDUGLUTIDE
     Dosage: 0.25 MILLILITER, QD
  8. COVID-19 VACCINE NOS [Suspect]
     Active Substance: COVID-19 VACCINE
     Indication: COVID-19 immunisation
  9. RINVOQ [Concomitant]
     Active Substance: UPADACITINIB
     Dosage: 15 MILLIGRAM, QD
  10. BUPRENORPHINE [Concomitant]
     Active Substance: BUPRENORPHINE
  11. IMITREX [Concomitant]
     Active Substance: SUMATRIPTAN SUCCINATE
  12. SUMATRIPTAN SUCCINATE [Concomitant]
     Active Substance: SUMATRIPTAN SUCCINATE
  13. ZTLIDO [Concomitant]
     Active Substance: LIDOCAINE
  14. TRILEPTAL [Concomitant]
     Active Substance: OXCARBAZEPINE
  15. DILAUDID [Concomitant]
     Active Substance: HYDROMORPHONE HYDROCHLORIDE
  16. MOVANTIK [Concomitant]
     Active Substance: NALOXEGOL OXALATE
  17. HYDROCHLOROTHIAZIDE [Concomitant]
     Active Substance: HYDROCHLOROTHIAZIDE
  18. CREON [Concomitant]
     Active Substance: PANCRELIPASE AMYLASE\PANCRELIPASE LIPASE\PANCRELIPASE PROTEASE
  19. CHLORZOXAZONE [Concomitant]
     Active Substance: CHLORZOXAZONE
  20. ORENCIA [Concomitant]
     Active Substance: ABATACEPT
  21. PREDNISONE [Concomitant]
     Active Substance: PREDNISONE
  22. METHOTREXATE [Concomitant]
     Active Substance: METHOTREXATE
  23. ZOFRAN [Concomitant]
     Active Substance: ONDANSETRON HYDROCHLORIDE
  24. DEXILANT [Concomitant]
     Active Substance: DEXLANSOPRAZOLE
  25. PROMETHAZINE HYDROCHLORIDE [Concomitant]
     Active Substance: PROMETHAZINE HYDROCHLORIDE
  26. TIZANIDINE HYDROCHLORIDE [Concomitant]
     Active Substance: TIZANIDINE HYDROCHLORIDE
  27. SEROQUEL XR [Concomitant]
     Active Substance: QUETIAPINE FUMARATE
  28. SINGULAIR [Concomitant]
     Active Substance: MONTELUKAST SODIUM
  29. CYANOCOBALAMIN [Concomitant]
     Active Substance: CYANOCOBALAMIN
  30. AMITRIPTYLINE HYDROCHLORIDE [Concomitant]
     Active Substance: AMITRIPTYLINE HYDROCHLORIDE
  31. CITALOPRAM HYDROBROMIDE [Concomitant]
     Active Substance: CITALOPRAM HYDROBROMIDE
  32. FAMOTIDINE [Concomitant]
     Active Substance: FAMOTIDINE
  33. DEPAKOTE [Concomitant]
     Active Substance: DIVALPROEX SODIUM
  34. GABAPENTIN [Concomitant]
     Active Substance: GABAPENTIN
  35. BELBUCA [Concomitant]
     Active Substance: BUPRENORPHINE HYDROCHLORIDE
  36. LEFLUNOMIDE [Concomitant]
     Active Substance: LEFLUNOMIDE
  37. CYPROHEPTADINE HYDROCHLORIDE [Concomitant]
     Active Substance: CYPROHEPTADINE HYDROCHLORIDE
  38. SEROQUEL [Concomitant]
     Active Substance: QUETIAPINE FUMARATE
  39. PREGABALIN [Concomitant]
     Active Substance: PREGABALIN

REACTIONS (15)
  - Procedural pain [Unknown]
  - Impaired gastric emptying [Unknown]
  - Upper-airway cough syndrome [Unknown]
  - Chest discomfort [Unknown]
  - Weight decreased [Unknown]
  - Body temperature increased [Unknown]
  - Pain [Unknown]
  - Dyspepsia [Unknown]
  - Feeling abnormal [Unknown]
  - Malnutrition [Unknown]
  - Post procedural complication [Unknown]
  - Decreased appetite [Unknown]
  - Nasopharyngitis [Unknown]
  - Abdominal distension [Unknown]
  - Road traffic accident [Unknown]

NARRATIVE: CASE EVENT DATE: 20200226
